FAERS Safety Report 23392710 (Version 1)
Quarter: 2024Q1

REPORT INFORMATION
  Report Type: Spontaneous
  Country: US (occurrence: US)
  Receive Date: 20240111
  Receipt Date: 20240111
  Transmission Date: 20240410
  Serious: No
  Sender: FDA-Public Use
  Company Number: US-REGENERON PHARMACEUTICALS, INC.-2023-097107

PATIENT
  Sex: Female

DRUGS (3)
  1. EYLEA [Suspect]
     Active Substance: AFLIBERCEPT
     Indication: Neovascular age-related macular degeneration
     Dosage: 2 MG, SOMETIMES EVERY 4 WEEKS, 6 WEEKS, 8 WEEKS, FORMULATION: UNKNOWN
  2. EYLEA [Suspect]
     Active Substance: AFLIBERCEPT
     Dosage: 2 MG, SOMETIMES EVERY 4 WEEKS, 6 WEEKS, 8 WEEKS, FORMULATION: UNKNOWN
  3. VABYSMO [Concomitant]
     Active Substance: FARICIMAB\FARICIMAB-SVOA
     Indication: Neovascular age-related macular degeneration
     Dosage: UNK

REACTIONS (3)
  - Dry eye [Unknown]
  - Vitreous floaters [Not Recovered/Not Resolved]
  - Drug effect less than expected [Unknown]
